FAERS Safety Report 6767507-3 (Version None)
Quarter: 2010Q2

REPORT INFORMATION
  Report Type: 
  Country: None (occurrence: None)
  Receive Date: 20100610
  Receipt Date: 20100526
  Transmission Date: 20101027
  Serious: Yes (Hospitalization, Other)
  Sender: FDA-Public Use
  Company Number: 1-22785508

PATIENT
  Age: 46 Year
  Sex: Female
  Weight: 55.3842 kg

DRUGS (2)
  1. WARFARIN SODIUM [Suspect]
     Indication: DEEP VEIN THROMBOSIS
     Dosage: 5 MG, DAILY, ORAL; 3 DOSES
     Route: 048
  2. ARGATROBAN INFUSION [Concomitant]

REACTIONS (9)
  - FATIGUE [None]
  - INFLAMMATION [None]
  - OEDEMA PERIPHERAL [None]
  - RENAL FAILURE ACUTE [None]
  - RESPIRATORY DEPRESSION [None]
  - RESPIRATORY DISTRESS [None]
  - SKIN GRAFT [None]
  - SKIN NECROSIS [None]
  - WOUND [None]
